FAERS Safety Report 9715580 (Version 1)
Quarter: 2013Q4

REPORT INFORMATION
  Report Type: Report from Study
  Country: CA (occurrence: CA)
  Receive Date: 20131127
  Receipt Date: 20131127
  Transmission Date: 20140711
  Serious: Yes (Other)
  Sender: FDA-Public Use
  Company Number: CA-ROCHE-1305298

PATIENT
  Sex: Female

DRUGS (1)
  1. XELODA [Suspect]
     Indication: NEOPLASM
     Dosage: 2-500MG 2X/DAY, 2-150MG 2X/DAY
     Route: 065

REACTIONS (8)
  - Epistaxis [Unknown]
  - Dehydration [Unknown]
  - Ageusia [Unknown]
  - Abdominal discomfort [Unknown]
  - Erythema [Unknown]
  - Myalgia [Unknown]
  - Contusion [Unknown]
  - Petechiae [Unknown]
